FAERS Safety Report 22332926 (Version 2)
Quarter: 2023Q2

REPORT INFORMATION
  Report Type: Spontaneous
  Country: CH (occurrence: CH)
  Receive Date: 20230517
  Receipt Date: 20230525
  Transmission Date: 20230722
  Serious: No
  Sender: FDA-Public Use
  Company Number: CH-MYLANLABS-2023M1050203

PATIENT
  Sex: Female

DRUGS (6)
  1. VIAGRA [Suspect]
     Active Substance: SILDENAFIL CITRATE
     Indication: Patent ductus arteriosus
     Dosage: 50 MILLIGRAM, TID (1-1-1-0)
     Route: 065
     Dates: start: 2010
  2. VIAGRA [Suspect]
     Active Substance: SILDENAFIL CITRATE
     Indication: Right-to-left cardiac shunt
  3. VIAGRA [Suspect]
     Active Substance: SILDENAFIL CITRATE
     Indication: Pulmonary hypertension
  4. VIAGRA [Suspect]
     Active Substance: SILDENAFIL CITRATE
     Indication: Double inlet left ventricle
  5. OPSUMIT [Concomitant]
     Active Substance: MACITENTAN
     Dosage: UNK
     Route: 065
  6. UPTRAVI [Concomitant]
     Active Substance: SELEXIPAG
     Dosage: UNK
     Route: 065

REACTIONS (2)
  - Off label use [Unknown]
  - No adverse event [Unknown]

NARRATIVE: CASE EVENT DATE: 20100101
